FAERS Safety Report 20684623 (Version 3)
Quarter: 2023Q2

REPORT INFORMATION
  Report Type: Spontaneous
  Country: US (occurrence: US)
  Receive Date: 20220407
  Receipt Date: 20230405
  Transmission Date: 20230722
  Serious: No
  Sender: FDA-Public Use
  Company Number: US-PFIZER INC-202200004243

PATIENT
  Age: 77 Year
  Sex: Female

DRUGS (3)
  1. IBRANCE [Suspect]
     Active Substance: PALBOCICLIB
     Dosage: 125 MG, CYCLIC
     Dates: start: 20211031, end: 202205
  2. IBRANCE [Suspect]
     Active Substance: PALBOCICLIB
     Dosage: UNK
     Dates: start: 2022
  3. IBRANCE [Suspect]
     Active Substance: PALBOCICLIB
     Dosage: 100 MG

REACTIONS (12)
  - Product dose omission issue [Unknown]
  - Fatigue [Unknown]
  - Hot flush [Unknown]
  - White blood cell count decreased [Unknown]
  - Nausea [Unknown]
  - Diarrhoea [Unknown]
  - Influenza like illness [Unknown]
  - Insomnia [Unknown]
  - Alopecia [Unknown]
  - Blood pressure abnormal [Unknown]
  - Constipation [Unknown]
  - Headache [Unknown]

NARRATIVE: CASE EVENT DATE: 20220101
